FAERS Safety Report 9721017 (Version 6)
Quarter: 2014Q2

REPORT INFORMATION
  Report Type: Spontaneous
  Country: US (occurrence: US)
  Receive Date: 20131129
  Receipt Date: 20140416
  Transmission Date: 20141212
  Serious: Yes (Other)
  Sender: FDA-Public Use
  Company Number: US-PFIZER INC-2013329615

PATIENT
  Age: 57 Year
  Sex: Female

DRUGS (8)
  1. METAXALONE [Suspect]
     Indication: BACK PAIN
     Dosage: 800 MG, 3X/DAY
     Route: 048
     Dates: start: 20130928
  2. METAXALONE [Suspect]
     Indication: MUSCLE SPASMS
  3. TRAMADOL [Concomitant]
     Indication: BACK PAIN
     Dosage: 50 MG, 2X/DAY
  4. METFORMIN [Concomitant]
     Indication: METABOLIC SYNDROME
     Dosage: 500 MG, 2X/DAY
  5. LACTULOSE [Concomitant]
     Indication: CONSTIPATION
     Dosage: AS NEEDED (PRN)
  6. VITAMIN D [Concomitant]
     Dosage: UNK
  7. CALCIUM [Concomitant]
     Dosage: UNK
  8. VITAMIN C [Concomitant]
     Dosage: UNK

REACTIONS (5)
  - Mental impairment [Unknown]
  - Disorientation [Unknown]
  - Impaired driving ability [Unknown]
  - Somnolence [Recovering/Resolving]
  - Malaise [Recovering/Resolving]
